FAERS Safety Report 5327982-8 (Version None)
Quarter: 2007Q2

REPORT INFORMATION
  Report Type: 
  Country: None (occurrence: None)
  Receive Date: 20070517
  Receipt Date: 20070509
  Transmission Date: 20071010
  Serious: Yes (Death, Other)
  Sender: FDA-Public Use
  Company Number: SE-PFIZER INC-2007038034

PATIENT
  Age: 79 Year
  Sex: Female

DRUGS (2)
  1. SERTRALINE [Suspect]
     Dosage: DAILY DOSE:25MG
  2. WARFARIN SODIUM [Interacting]

REACTIONS (2)
  - CEREBRAL HAEMORRHAGE [None]
  - DRUG INTERACTION [None]
